FAERS Safety Report 13892094 (Version 3)
Quarter: 2018Q4

REPORT INFORMATION
  Report Type: Spontaneous
  Country: GB (occurrence: GB)
  Receive Date: 20170822
  Receipt Date: 20181119
  Transmission Date: 20190204
  Serious: Yes (Hospitalization, Other)
  Sender: FDA-Public Use
  Company Number: GB-TEVA-796907ACC

PATIENT
  Age: 81 Year
  Sex: Male
  Weight: 82 kg

DRUGS (17)
  1. AMIODARONE [Concomitant]
     Active Substance: AMIODARONE
     Dosage: 200 MILLIGRAM DAILY;
     Dates: start: 20170516
  2. RAMIPRIL. [Concomitant]
     Active Substance: RAMIPRIL
     Dosage: 2.5 MILLIGRAM DAILY;
     Dates: start: 20170626
  3. WARFARIN [Suspect]
     Active Substance: WARFARIN
     Indication: CARDIAC VENTRICULAR THROMBOSIS
     Route: 048
     Dates: start: 20150626, end: 20170619
  4. WARFARIN [Suspect]
     Active Substance: WARFARIN
     Indication: ATRIAL FIBRILLATION
  5. DOXYCYCLINE. [Concomitant]
     Active Substance: DOXYCYCLINE
     Dosage: 2 IMMEDIATELY THEN 1 EVERY DAY.
     Dates: start: 20170530
  6. EPLERENONE. [Concomitant]
     Active Substance: EPLERENONE
     Dosage: 25 MILLIGRAM DAILY;
     Dates: start: 20170516
  7. FOSTAIR [Concomitant]
     Active Substance: BECLOMETHASONE\FORMOTEROL
     Dosage: 800 MICROGRAM DAILY; 200MICROGRAMS/DOSE / 6MICROGRAMS.
     Route: 055
     Dates: start: 20170626
  8. KONAKION MM [Concomitant]
     Active Substance: PHYTONADIONE
     Dosage: AS DIRECTED. 10MG/ML.
     Dates: start: 20170616
  9. LANSOPRAZOLE. [Concomitant]
     Active Substance: LANSOPRAZOLE
     Dosage: 30 MILLIGRAM DAILY;
     Dates: start: 20170616
  10. VENTOLIN [Concomitant]
     Active Substance: ALBUTEROL SULFATE
     Route: 055
     Dates: start: 20160923
  11. LAXIDO [Concomitant]
     Active Substance: POLYETHYLENE GLYCOL 3350\POTASSIUM CHLORIDE\SODIUM BICARBONATE\SODIUM CHLORIDE
     Dosage: 2 DAILY UNTIL MOTIONS ARE SOFT THEN ONE DAILY.
     Route: 048
     Dates: start: 20170419
  12. SIMVASTATIN. [Concomitant]
     Active Substance: SIMVASTATIN
     Dosage: 40 MILLIGRAM DAILY; AT NIGHT.
     Dates: start: 20170626
  13. BRALTUS [Concomitant]
     Dosage: 10 MICROGRAM DAILY;
     Route: 055
     Dates: start: 20170321
  14. PREDNISOLONE. [Concomitant]
     Active Substance: PREDNISOLONE
     Dosage: 40 MILLIGRAM DAILY;
     Dates: start: 20170602
  15. TRIMETHOPRIM. [Concomitant]
     Active Substance: TRIMETHOPRIM
     Dosage: 200 MILLIGRAM DAILY; NIGHT.
     Dates: start: 20170609, end: 20170626
  16. FUROSEMIDE. [Concomitant]
     Active Substance: FUROSEMIDE
     Dosage: 40 MILLIGRAM DAILY;
     Dates: start: 20170626, end: 20170717
  17. CO-AMOXICLAV [Concomitant]
     Active Substance: AMOXICILLIN\CLAVULANATE POTASSIUM
     Dosage: 3 DOSAGE FORMS DAILY; 50/125MG.
     Dates: start: 20170602

REACTIONS (3)
  - Muscular weakness [Recovered/Resolved with Sequelae]
  - Dysarthria [Recovered/Resolved with Sequelae]
  - Subdural haematoma [Recovered/Resolved]

NARRATIVE: CASE EVENT DATE: 20170618
